FAERS Safety Report 5752438-8 (Version None)
Quarter: 2008Q2

REPORT INFORMATION
  Report Type: 
  Country: None (occurrence: None)
  Receive Date: 20080529
  Receipt Date: 20080522
  Transmission Date: 20081010
  Serious: Yes (Other)
  Sender: FDA-Public Use
  Company Number: B0521940A

PATIENT
  Age: 72 Year
  Sex: Female

DRUGS (7)
  1. AVANDIA [Suspect]
     Route: 048
     Dates: start: 20061009, end: 20061023
  2. PERINDOPRIL ERBUMINE [Concomitant]
     Dosage: 2MG PER DAY
     Route: 048
     Dates: start: 20050101
  3. DAONIL [Concomitant]
     Dosage: 5MG THREE TIMES PER DAY
     Route: 048
  4. METFORMINE [Concomitant]
     Dosage: 850MG PER DAY
     Route: 048
  5. ASPIRIN [Concomitant]
     Indication: ANGINA PECTORIS
     Route: 048
     Dates: start: 20050101
  6. NITROGLYCERIN [Concomitant]
     Indication: ANGINA PECTORIS
     Route: 048
     Dates: start: 20050101
  7. OMEPRAZOLE [Concomitant]
     Indication: DRUG USE FOR UNKNOWN INDICATION
     Route: 065

REACTIONS (3)
  - ASTHENIA [None]
  - GAMMA-GLUTAMYLTRANSFERASE INCREASED [None]
  - TRANSAMINASES INCREASED [None]
